FAERS Safety Report 8476597-1 (Version None)
Quarter: 2012Q2

REPORT INFORMATION
  Report Type: 
  Country: None (occurrence: None)
  Receive Date: 20120628
  Receipt Date: 20120626
  Transmission Date: 20120825
  Serious: Yes (Disabling, Other)
  Sender: FDA-Public Use
  Company Number: GB-PFIZER INC-2012153250

PATIENT
  Age: 57 Year
  Sex: Female
  Weight: 76.2 kg

DRUGS (4)
  1. ACETAMINOPHEN AND CODEINE PHOSPHATE [Concomitant]
     Indication: PAIN
     Dosage: 30/500MG, 2DF 4 TIMES A DAY
     Route: 048
     Dates: start: 20100801
  2. VARENICLINE TARTRATE [Suspect]
     Indication: SMOKING CESSATION THERAPY
     Dosage: 1 MG, 2X/DAY
     Route: 048
     Dates: start: 20120522, end: 20120606
  3. TRIMOVATE [Concomitant]
     Dosage: 1 DF, 2X/DAY STARTED MORE THAN 1 YEAR PRIOR TO THE REPORT DATE
     Route: 061
  4. CITALOPRAM HYDROBROMIDE [Concomitant]
     Indication: DEPRESSION
     Dosage: 20 MG, 1X/DAY STARTED MORE THAN ONE YEAR PRIOR TO REPORT
     Route: 048

REACTIONS (4)
  - RASH GENERALISED [None]
  - PRURITUS [None]
  - SKIN EXFOLIATION [None]
  - PAIN [None]
